FAERS Safety Report 15476176 (Version 3)
Quarter: 2018Q4

REPORT INFORMATION
  Report Type: Spontaneous
  Country: US (occurrence: US)
  Receive Date: 20181009
  Receipt Date: 20181130
  Transmission Date: 20190205
  Serious: No
  Sender: FDA-Public Use
  Company Number: US-ASTRAZENECA-2018SF23626

PATIENT
  Age: 23704 Day
  Sex: Male
  Weight: 113.4 kg

DRUGS (4)
  1. BYDUREON BCISE [Suspect]
     Active Substance: EXENATIDE
     Indication: TYPE 2 DIABETES MELLITUS
     Route: 058
     Dates: start: 20180908
  2. METFORMIN [Concomitant]
     Active Substance: METFORMIN HYDROCHLORIDE
  3. BYDUREON [Suspect]
     Active Substance: EXENATIDE
     Indication: TYPE 2 DIABETES MELLITUS
     Route: 058
     Dates: start: 20150422, end: 20180901
  4. GLIMEPIRIDE. [Concomitant]
     Active Substance: GLIMEPIRIDE

REACTIONS (18)
  - Injection site pain [Not Recovered/Not Resolved]
  - Device issue [Unknown]
  - Glycosylated haemoglobin abnormal [Unknown]
  - Contusion [Unknown]
  - Muscle disorder [Unknown]
  - Bursitis [Unknown]
  - Fall [Unknown]
  - Injection site mass [Not Recovered/Not Resolved]
  - Liver disorder [Unknown]
  - Blood glucose fluctuation [Unknown]
  - Incorrect dose administered [Unknown]
  - Gait disturbance [Unknown]
  - Back pain [Unknown]
  - Joint injury [Unknown]
  - Injection site discomfort [Unknown]
  - Incorrect route of product administration [Unknown]
  - Nerve compression [Unknown]
  - Blood glucose decreased [Unknown]

NARRATIVE: CASE EVENT DATE: 20180908
